FAERS Safety Report 4451374-7 (Version None)
Quarter: 2004Q3

REPORT INFORMATION
  Report Type: 
  Country: None (occurrence: None)
  Receive Date: 20040916
  Receipt Date: 20040906
  Transmission Date: 20050211
  Serious: Yes (Other)
  Sender: FDA-Public Use
  Company Number: FR-JNJFOC-20040501499

PATIENT
  Sex: Female
  Weight: 2.38 kg

DRUGS (11)
  1. PROPULSID [Suspect]
     Route: 049
     Dates: start: 20040506
  2. PROPULSID [Suspect]
     Indication: GASTROOESOPHAGEAL REFLUX DISEASE
     Route: 049
     Dates: start: 20040506
  3. UVESTEROL [Concomitant]
     Route: 049
     Dates: start: 20040315
  4. UVESTEROL [Concomitant]
     Route: 049
     Dates: start: 20040315
  5. UVESTEROL [Concomitant]
     Route: 049
     Dates: start: 20040315
  6. UVESTEROL [Concomitant]
     Indication: PROPHYLAXIS
     Route: 049
     Dates: start: 20040315
  7. IRON SULFATETHIAMIN COMPOUND TAB [Concomitant]
     Indication: ANAEMIA
     Route: 049
     Dates: start: 20040430
  8. RIFAMYCIN [Concomitant]
     Indication: CONJUNCTIVITIS
     Route: 065
     Dates: start: 20040503
  9. NEO RECORMON [Concomitant]
     Indication: ANAEMIA
     Route: 030
     Dates: start: 20040408
  10. MOTILIUM [Concomitant]
     Route: 049
     Dates: start: 20040323, end: 20040506
  11. DEBRIDAT [Concomitant]
     Route: 049
     Dates: start: 20040501, end: 20040506

REACTIONS (3)
  - ELECTROCARDIOGRAM QT CORRECTED INTERVAL PROLONGED [None]
  - ELECTROCARDIOGRAM T WAVE ABNORMAL [None]
  - ELECTROCARDIOGRAM T WAVE AMPLITUDE DECREASED [None]
